FAERS Safety Report 7111656-7 (Version None)
Quarter: 2010Q4

REPORT INFORMATION
  Report Type: 
  Country: None (occurrence: None)
  Receive Date: 20101118
  Receipt Date: 20101103
  Transmission Date: 20110411
  Serious: Yes (Other)
  Sender: FDA-Public Use
  Company Number: PHHY2009CA45193

PATIENT
  Sex: Female

DRUGS (2)
  1. ACLASTA [Suspect]
     Indication: OSTEOPOROSIS
     Dosage: 5 MG/100 ML
     Dates: start: 20091014
  2. ACLASTA [Suspect]
     Dosage: 5 MG/100 ML
     Dates: start: 20101102

REACTIONS (4)
  - ARTERIAL OCCLUSIVE DISEASE [None]
  - PAIN [None]
  - PRURITUS [None]
  - URTICARIA [None]
